FAERS Safety Report 8080802-3 (Version None)
Quarter: 2012Q1

REPORT INFORMATION
  Report Type: 
  Country: None (occurrence: None)
  Receive Date: 20120130
  Receipt Date: 20120116
  Transmission Date: 20120608
  Serious: Yes (Life-Threatening)
  Sender: FDA-Public Use
  Company Number: GB-ROCHE-1031309

PATIENT
  Age: 65 Year
  Sex: Male

DRUGS (11)
  1. METHYLPREDNISOLONE [Concomitant]
     Indication: VASCULITIS
     Dosage: 3 DOSES.
     Route: 042
  2. SEPTRA [Concomitant]
     Indication: ANTIFUNGAL PROPHYLAXIS
  3. PREDNISOLONE [Concomitant]
     Route: 048
  4. PREDNISOLONE [Concomitant]
     Route: 048
  5. PREDNISOLONE [Concomitant]
     Route: 048
  6. CYCLOPHOSPHAMIDE [Concomitant]
     Indication: VASCULITIS
     Dosage: 2 DOSES
     Route: 042
  7. PREDNISOLONE [Concomitant]
     Dosage: MAINTENANCE DOSE
     Route: 048
  8. RITUXIMAB [Suspect]
     Indication: VASCULITIS
     Route: 042
  9. PREDNISOLONE [Concomitant]
     Indication: VASCULITIS
     Dosage: INITIAL HIGH DOSES
     Route: 048
  10. PREDNISOLONE [Concomitant]
     Route: 048
  11. PREDNISOLONE [Concomitant]
     Route: 048

REACTIONS (1)
  - PNEUMONITIS [None]
